FAERS Safety Report 14526393 (Version 6)
Quarter: 2019Q1

REPORT INFORMATION
  Report Type: Spontaneous
  Country: US (occurrence: US)
  Receive Date: 20180213
  Receipt Date: 20190130
  Transmission Date: 20190417
  Serious: Yes (Hospitalization, Other)
  Sender: FDA-Public Use
  Company Number: US-DSJP-DSU-2017-149918

PATIENT

DRUGS (2)
  1. BENICAR [Suspect]
     Active Substance: OLMESARTAN MEDOXOMIL
     Dosage: 20 MG, UNK
     Dates: start: 20050820, end: 20170821
  2. BENICAR [Suspect]
     Active Substance: OLMESARTAN MEDOXOMIL
     Indication: PRODUCT USED FOR UNKNOWN INDICATION
     Dosage: 5 MG, QD
     Route: 048
     Dates: start: 20050820

REACTIONS (9)
  - Weight decreased [Not Recovered/Not Resolved]
  - Pancreatitis [Not Recovered/Not Resolved]
  - Large intestine polyp [Not Recovered/Not Resolved]
  - Haemorrhoids [Recovered/Resolved]
  - Diverticulum intestinal [Unknown]
  - Melaena [Unknown]
  - Gastrooesophageal reflux disease [Not Recovered/Not Resolved]
  - Hiatus hernia [Unknown]
  - Irritable bowel syndrome [Recovered/Resolved]

NARRATIVE: CASE EVENT DATE: 20050822
